FAERS Safety Report 18969256 (Version 1)
Quarter: 2021Q1

REPORT INFORMATION
  Report Type: Spontaneous
  Country: US (occurrence: US)
  Receive Date: 20210304
  Receipt Date: 20210304
  Transmission Date: 20210420
  Serious: No
  Sender: FDA-Public Use
  Company Number: US-ELI_LILLY_AND_COMPANY-US202103002450

PATIENT
  Age: 1 Month
  Sex: Male

DRUGS (1)
  1. HUMATROPE [Suspect]
     Active Substance: SOMATROPIN
     Indication: HYPOPITUITARISM
     Dosage: 0.1 MG, DAILY
     Route: 065
     Dates: start: 20210303

REACTIONS (2)
  - Off label use [Unknown]
  - Crying [Unknown]

NARRATIVE: CASE EVENT DATE: 20210303
